FAERS Safety Report 6438830-7 (Version None)
Quarter: 2009Q4

REPORT INFORMATION
  Report Type: 
  Country: None (occurrence: None)
  Receive Date: 20091110
  Receipt Date: 20091023
  Transmission Date: 20100525
  Serious: Yes (Hospitalization)
  Sender: FDA-Public Use
  Company Number: 1022556-2009-00238

PATIENT
  Sex: Female

DRUGS (1)
  1. SELSUN BLUE MEDICATED TREATMENT DANDRUFF SHA [Suspect]
     Indication: DANDRUFF
     Dosage: 2 WASHINGS, TOPICAL
     Route: 061
     Dates: start: 20090729

REACTIONS (3)
  - ANGIOEDEMA [None]
  - DERMATITIS CONTACT [None]
  - HYPERSENSITIVITY [None]
